FAERS Safety Report 21301749 (Version 1)
Quarter: 2022Q3

REPORT INFORMATION
  Report Type: Spontaneous
  Country: US (occurrence: US)
  Receive Date: 20220907
  Receipt Date: 20220907
  Transmission Date: 20221027
  Serious: Yes (Hospitalization)
  Sender: FDA-Public Use
  Company Number: US-MYLANLABS-2022M1091791

PATIENT
  Age: 86 Year
  Sex: Female

DRUGS (12)
  1. CALCITONIN SALMON [Suspect]
     Active Substance: CALCITONIN SALMON
     Indication: Parathyroid tumour benign
     Dosage: UNK
     Route: 065
  2. CALCITONIN SALMON [Suspect]
     Active Substance: CALCITONIN SALMON
     Indication: Hypercalcaemia
  3. CINACALCET HYDROCHLORIDE [Suspect]
     Active Substance: CINACALCET HYDROCHLORIDE
     Indication: Parathyroid tumour benign
     Dosage: UNK
     Route: 065
  4. CINACALCET HYDROCHLORIDE [Suspect]
     Active Substance: CINACALCET HYDROCHLORIDE
     Indication: Hypercalcaemia
  5. FUROSEMIDE [Suspect]
     Active Substance: FUROSEMIDE
     Indication: Parathyroid tumour benign
     Dosage: UNK
     Route: 065
  6. FUROSEMIDE [Suspect]
     Active Substance: FUROSEMIDE
     Indication: Hypercalcaemia
  7. IBANDRONATE SODIUM [Suspect]
     Active Substance: IBANDRONATE SODIUM
     Indication: Parathyroid tumour benign
     Dosage: UNK
     Route: 065
  8. IBANDRONATE SODIUM [Suspect]
     Active Substance: IBANDRONATE SODIUM
     Indication: Hypercalcaemia
  9. PAMIDRONATE [Suspect]
     Active Substance: PAMIDRONATE DISODIUM
     Indication: Parathyroid tumour benign
     Dosage: UNK
     Route: 065
  10. PAMIDRONATE [Suspect]
     Active Substance: PAMIDRONATE DISODIUM
     Indication: Hypercalcaemia
  11. SALINE [Suspect]
     Active Substance: SODIUM CHLORIDE
     Indication: Parathyroid tumour benign
     Dosage: UNK
     Route: 042
  12. SALINE [Suspect]
     Active Substance: SODIUM CHLORIDE
     Indication: Hypercalcaemia

REACTIONS (1)
  - Drug ineffective [Unknown]
